FAERS Safety Report 12432882 (Version 2)
Quarter: 2016Q2

REPORT INFORMATION
  Report Type: Spontaneous
  Country: SK (occurrence: SK)
  Receive Date: 20160603
  Receipt Date: 20160622
  Transmission Date: 20160815
  Serious: Yes (Other)
  Sender: FDA-Public Use
  Company Number: SK-ABBVIE-16K-260-1641023-00

PATIENT
  Sex: Female
  Weight: 68 kg

DRUGS (11)
  1. SULFASALAZINE DELAYED-RELEASE [Concomitant]
     Active Substance: SULFASALAZINE
     Indication: RHEUMATIC DISORDER
     Dosage: 2-0-2
  2. VIGANTOL [Concomitant]
     Indication: PRODUCT USED FOR UNKNOWN INDICATION
     Route: 048
  3. PREDNISON [Concomitant]
     Active Substance: PREDNISONE
     Indication: AUTOIMMUNE HEPATITIS
     Route: 048
  4. URSOFALK [Concomitant]
     Active Substance: URSODIOL
     Indication: PRODUCT USED FOR UNKNOWN INDICATION
     Route: 048
  5. ARTRODAR [Concomitant]
     Active Substance: DIACEREIN
     Indication: RHEUMATIC DISORDER
     Dosage: 0-0-1
     Route: 048
  6. HUMIRA [Suspect]
     Active Substance: ADALIMUMAB
     Indication: IRIDOCYCLITIS
     Route: 058
     Dates: start: 20160216, end: 20160427
  7. HUMIRA [Suspect]
     Active Substance: ADALIMUMAB
     Indication: PSORIATIC ARTHROPATHY
     Route: 058
     Dates: start: 20160525, end: 20160525
  8. HELICID [Concomitant]
     Indication: AUTOIMMUNE HEPATITIS
     Route: 048
  9. VEROSPIRON [Concomitant]
     Active Substance: SPIRONOLACTONE
     Indication: AUTOIMMUNE HEPATITIS
     Route: 048
  10. VITACALCIN [Concomitant]
     Indication: RHEUMATIC DISORDER
     Route: 048
  11. FLECTOR [Concomitant]
     Active Substance: DICLOFENAC EPOLAMINE
     Indication: PRODUCT USED FOR UNKNOWN INDICATION

REACTIONS (1)
  - Invasive ductal breast carcinoma [Not Recovered/Not Resolved]

NARRATIVE: CASE EVENT DATE: 2016
